FAERS Safety Report 4687676-9 (Version None)
Quarter: 2005Q2

REPORT INFORMATION
  Report Type: 
  Country: None (occurrence: None)
  Receive Date: 20050608
  Receipt Date: 20050608
  Transmission Date: 20051028
  Serious: No
  Sender: FDA-Public Use
  Company Number: None

PATIENT
  Age: 28 Year
  Sex: Male
  Weight: 74.8435 kg

DRUGS (2)
  1. MEPERIDINE 100MG/ML AMP [Suspect]
     Indication: PANCREATITIS
     Dosage: 100MG IM Q3H PRN PAIN
     Route: 030
     Dates: start: 20050606
  2. MEPERIDINE 100MG/ML AMP [Suspect]
     Indication: PANCREATITIS
     Dosage: 100MG IM Q3H PRN PAIN
     Route: 030
     Dates: start: 20050607

REACTIONS (1)
  - CONVULSION [None]
